FAERS Safety Report 24952373 (Version 1)
Quarter: 2025Q1

REPORT INFORMATION
  Report Type: Spontaneous
  Country: US (occurrence: US)
  Receive Date: 20250210
  Receipt Date: 20250210
  Transmission Date: 20250409
  Serious: No
  Sender: DERMAVANT SCIENCES
  Company Number: US-Dermavant-001941

PATIENT
  Sex: Female

DRUGS (3)
  1. VTAMA [Suspect]
     Active Substance: TAPINAROF
     Indication: Psoriasis
     Route: 061
  2. SKYRIZI [Concomitant]
     Active Substance: RISANKIZUMAB-RZAA
  3. ZORYVE [Concomitant]
     Active Substance: ROFLUMILAST

REACTIONS (1)
  - Vomiting [Recovering/Resolving]
